FAERS Safety Report 10152199 (Version 1)
Quarter: 2014Q2

REPORT INFORMATION
  Report Type: Spontaneous
  Country: US (occurrence: US)
  Receive Date: 20140505
  Receipt Date: 20140505
  Transmission Date: 20141212
  Serious: Yes (Hospitalization)
  Sender: FDA-Public Use
  Company Number: US-BAYER-2014-063319

PATIENT
  Sex: Male

DRUGS (1)
  1. STIVARGA [Suspect]
     Indication: COLORECTAL CANCER
     Dosage: 160MG/DAY
     Route: 048
     Dates: start: 201404, end: 201404

REACTIONS (2)
  - Stomatitis [Unknown]
  - Cardiac disorder [Unknown]
